FAERS Safety Report 23827019 (Version 1)
Quarter: 2024Q2

REPORT INFORMATION
  Report Type: Spontaneous
  Country: FR (occurrence: FR)
  Receive Date: 20240507
  Receipt Date: 20240507
  Transmission Date: 20240716
  Serious: No
  Sender: FDA-Public Use
  Company Number: FR-ROCHE-3353073

PATIENT
  Sex: Male
  Weight: 128 kg

DRUGS (4)
  1. GAVRETO [Suspect]
     Active Substance: PRALSETINIB
     Indication: Thyroid cancer
     Dosage: QS 3 MONTHS?ON 23/MAY/2023, CURRENT TREATMENT WAS FINISHED
     Route: 048
  2. CETIRIZINE [Concomitant]
     Active Substance: CETIRIZINE HYDROCHLORIDE
     Dosage: 1 TABLET TO BE TAKEN 1 HOUR BEFORE THE SCAN
     Route: 065
  3. CHOLECALCIFEROL [Concomitant]
     Active Substance: CHOLECALCIFEROL
     Dosage: 1 AMPOULE TO BE DRUNK EVERY 2 MONTHS?1 VIAL TO BE DRUNK EVERY 15 DAYS 3 TIMES, THEN ONCE EVERY 1
     Route: 065
  4. DOLIPRANE [Concomitant]
     Active Substance: ACETAMINOPHEN
     Indication: Pain
     Dosage: EVERY 6 HOURS IF NEEDED (MAX 4/DAY)
     Route: 065

REACTIONS (2)
  - Off label use [Unknown]
  - Diarrhoea [Unknown]
